FAERS Safety Report 17318145 (Version 1)
Quarter: 2020Q1

REPORT INFORMATION
  Report Type: Spontaneous
  Country: US (occurrence: US)
  Receive Date: 20200124
  Receipt Date: 20200124
  Transmission Date: 20200409
  Serious: Yes (Other)
  Sender: FDA-Public Use
  Company Number: US-PFIZER INC-2020032914

PATIENT
  Age: 32 Day
  Sex: Female

DRUGS (25)
  1. LORAZEPAM. [Suspect]
     Active Substance: LORAZEPAM
     Indication: RESTLESSNESS
     Dosage: 2 MG, UNK (ANOTHER BOLUS)
     Route: 040
  2. LORAZEPAM. [Suspect]
     Active Substance: LORAZEPAM
     Indication: AGITATION
     Dosage: UNK (A DRIP WAS STARTED AT 3 MG/H)
     Route: 041
  3. RIBAVIRIN. [Concomitant]
     Active Substance: RIBAVIRIN
     Indication: BRONCHIOLITIS
  4. LORAZEPAM. [Suspect]
     Active Substance: LORAZEPAM
     Dosage: UNK (AN ADDITIONAL BOLUS WAS ADMINISTERED)
     Route: 040
  5. LORAZEPAM. [Suspect]
     Active Substance: LORAZEPAM
     Dosage: 1 MG, UNK (BOLUS)
     Route: 040
  6. ALBUTEROL [SALBUTAMOL] [Concomitant]
     Active Substance: ALBUTEROL
     Indication: RESPIRATORY DISTRESS
     Dosage: UNK
  7. TERBUTALINE [Concomitant]
     Active Substance: TERBUTALINE
     Indication: BRONCHIOLITIS
  8. LORAZEPAM. [Suspect]
     Active Substance: LORAZEPAM
     Dosage: UNK (DRIP WAS INCREASED TO 6 MG/H)
     Route: 041
  9. CISAPRIDE [Concomitant]
     Active Substance: CISAPRIDE
     Indication: GASTROOESOPHAGEAL REFLUX DISEASE
     Dosage: UNK
  10. TERBUTALINE [Concomitant]
     Active Substance: TERBUTALINE
     Indication: RESPIRATORY SYNCYTIAL VIRUS BRONCHIOLITIS
     Dosage: UNK (DRIP)
     Route: 041
  11. TERBUTALINE [Concomitant]
     Active Substance: TERBUTALINE
     Indication: RESPIRATORY DISTRESS
  12. VANCOMYCIN [Concomitant]
     Active Substance: VANCOMYCIN
     Indication: PNEUMOCOCCAL INFECTION
     Dosage: UNK
  13. CEFTRIAXONE. [Concomitant]
     Active Substance: CEFTRIAXONE
     Indication: PNEUMOCOCCAL INFECTION
     Dosage: UNK
  14. LORAZEPAM. [Suspect]
     Active Substance: LORAZEPAM
     Dosage: UNK (INCREASED TO 4 MG/H)
  15. RANITIDINE. [Concomitant]
     Active Substance: RANITIDINE
     Indication: GASTROOESOPHAGEAL REFLUX DISEASE
     Dosage: UNK
  16. LORAZEPAM. [Suspect]
     Active Substance: LORAZEPAM
     Dosage: UNK (LORAZEPAM DRIP WAS SUBSEQUENTLY DECREASED TO 5MG/H)
     Route: 040
  17. RIBAVIRIN. [Concomitant]
     Active Substance: RIBAVIRIN
     Indication: RESPIRATORY SYNCYTIAL VIRUS BRONCHIOLITIS
     Dosage: UNK (A 3-DAY COURSE)
  18. LORAZEPAM. [Suspect]
     Active Substance: LORAZEPAM
     Dosage: UNK (INCREASED TO 4 MG/H)
     Route: 041
  19. LORAZEPAM. [Suspect]
     Active Substance: LORAZEPAM
     Dosage: UNK (INCREASED TO 7 MG/H)
     Route: 041
  20. LORAZEPAM. [Suspect]
     Active Substance: LORAZEPAM
     Indication: RESPIRATORY DISTRESS
     Dosage: 1 MG, UNK (A BOLUS)
     Route: 040
  21. LORAZEPAM. [Suspect]
     Active Substance: LORAZEPAM
     Dosage: UNK (RESTARTED AT 2 MG/H)
     Route: 041
  22. RIBAVIRIN. [Concomitant]
     Active Substance: RIBAVIRIN
     Indication: RESPIRATORY DISTRESS
  23. LORAZEPAM. [Suspect]
     Active Substance: LORAZEPAM
     Dosage: UNK (INCREASED TO 5 MG/H)
     Route: 041
  24. LORAZEPAM. [Suspect]
     Active Substance: LORAZEPAM
     Dosage: 2 MG, UNK (BOLUS)
     Route: 040
  25. LORAZEPAM. [Suspect]
     Active Substance: LORAZEPAM
     Dosage: UNK (LORAZEPAM DRIP WAS CONTINUED AT 6 MG/H)
     Route: 041

REACTIONS (6)
  - Oedema [Unknown]
  - Hypokalaemia [Unknown]
  - Blood osmolarity increased [Unknown]
  - Drug ineffective [Recovered/Resolved]
  - Product administration error [Unknown]
  - Hypernatraemia [Unknown]
